FAERS Safety Report 16777059 (Version 1)
Quarter: 2019Q3

REPORT INFORMATION
  Report Type: Spontaneous
  Country: NO (occurrence: NO)
  Receive Date: 20190905
  Receipt Date: 20190905
  Transmission Date: 20191005
  Serious: Yes (Hospitalization)
  Sender: FDA-Public Use
  Company Number: NO-ENDO PHARMACEUTICALS INC-2019-107702

PATIENT
  Age: 46 Year
  Sex: Male

DRUGS (4)
  1. FIRMAGON [Suspect]
     Active Substance: DEGARELIX ACETATE
     Dosage: 240 MG, SINGLE (INITIALLY)
     Route: 058
     Dates: start: 2017, end: 2018
  2. FORTESTA [Suspect]
     Active Substance: TESTOSTERONE
     Indication: BLOOD TESTOSTERONE DECREASED
     Dosage: UNK UNKNOWN,USED FOR ABOUT 2 1/2 YEARS
     Route: 003
     Dates: start: 2017, end: 201906
  3. FIRMAGON [Suspect]
     Active Substance: DEGARELIX ACETATE
     Indication: MULTIPLE SCLEROSIS
     Dosage: 80 MG, UNKNOWN (MAINTENANCE DOSE)
     Route: 058
     Dates: start: 2017, end: 2018
  4. MAVENCLAD [Suspect]
     Active Substance: CLADRIBINE
     Indication: MULTIPLE SCLEROSIS
     Dosage: 10 MG, UNKNOWN (RECOMMENDED DOSE IS 3.5MG/KG DURING 2 YEARS)
     Route: 048
     Dates: start: 201806

REACTIONS (1)
  - Bladder cancer [Recovered/Resolved with Sequelae]

NARRATIVE: CASE EVENT DATE: 201906
